FAERS Safety Report 21302729 (Version 1)
Quarter: 2022Q3

REPORT INFORMATION
  Report Type: Spontaneous
  Country: US (occurrence: None)
  Receive Date: 20220907
  Receipt Date: 20220907
  Transmission Date: 20221027
  Serious: No
  Sender: FDA-Public Use
  Company Number: None

PATIENT

DRUGS (2)
  1. TRAMADOL [Suspect]
     Active Substance: TRAMADOL
  2. CELECOXIB [Suspect]
     Active Substance: CELECOXIB

REACTIONS (3)
  - Product dispensing error [None]
  - Drug dispensed to wrong patient [None]
  - Intercepted product dispensing error [None]
